FAERS Safety Report 4529394-3 (Version None)
Quarter: 2004Q4

REPORT INFORMATION
  Report Type: 
  Country: None (occurrence: None)
  Receive Date: 20041215
  Receipt Date: 20041215
  Transmission Date: 20050328
  Serious: Yes (Life-Threatening)
  Sender: FDA-Public Use
  Company Number: None

PATIENT
  Age: 80 Year
  Weight: 68.0396 kg

DRUGS (1)
  1. BEXTRA [Suspect]
     Indication: ARTHRITIS
     Dosage: 10 MG, MOUTH
     Dates: start: 20041023, end: 20041120

REACTIONS (2)
  - OEDEMA PERIPHERAL [None]
  - TONGUE DISORDER [None]
